FAERS Safety Report 23718943 (Version 1)
Quarter: 2024Q2

REPORT INFORMATION
  Report Type: Spontaneous
  Country: EG (occurrence: EG)
  Receive Date: 20240408
  Receipt Date: 20240408
  Transmission Date: 20240716
  Serious: Yes (Disabling)
  Sender: FDA-Public Use
  Company Number: EG-HIKMA PHARMACEUTICALS USA INC.-EG-H14001-24-02795

PATIENT

DRUGS (1)
  1. PACLITAXEL [Suspect]
     Active Substance: PACLITAXEL
     Indication: Breast cancer
     Dosage: 250 MILLIGRAM DILUTED IN 500 ML NORMAL SALINE OVER A TIME OF 2 HRS
     Route: 041

REACTIONS (4)
  - Neuropathy peripheral [Unknown]
  - Bone pain [Unknown]
  - Walking disability [Unknown]
  - Gait disturbance [Unknown]
